FAERS Safety Report 9324983 (Version 1)
Quarter: 2013Q2

REPORT INFORMATION
  Report Type: Spontaneous
  Country: SE (occurrence: SE)
  Receive Date: 20130603
  Receipt Date: 20130603
  Transmission Date: 20140414
  Serious: Yes (Hospitalization)
  Sender: FDA-Public Use
  Company Number: SE-SANOFI-AVENTIS-2013SA052254

PATIENT
  Age: 83 Year
  Sex: Male

DRUGS (2)
  1. JEVTANA [Suspect]
     Indication: PROSTATE CANCER METASTATIC
     Route: 042
     Dates: start: 20130109
  2. JEVTANA [Suspect]
     Indication: PROSTATE CANCER METASTATIC
     Route: 042
     Dates: start: 20130405, end: 20130409

REACTIONS (4)
  - Syncope [Unknown]
  - Myocardial infarction [Unknown]
  - Anaemia [Unknown]
  - Dyspnoea [Unknown]
